FAERS Safety Report 9245530 (Version 3)
Quarter: 2013Q2

REPORT INFORMATION
  Report Type: Spontaneous
  Country: US (occurrence: US)
  Receive Date: 20130422
  Receipt Date: 20130513
  Transmission Date: 20140414
  Serious: No
  Sender: FDA-Public Use
  Company Number: US-PFIZER INC-2013121174

PATIENT
  Age: 60 Year
  Sex: Male
  Weight: 64.85 kg

DRUGS (3)
  1. SUTENT [Suspect]
     Indication: RENAL CANCER METASTATIC
     Dosage: 50 MG, 1X/DAY  (FOR 4 WEEKS AND 2 WEEKS OF WASH OUT PERIOD)
     Route: 048
     Dates: start: 201208, end: 201212
  2. SUTENT [Suspect]
     Dosage: 50 MG, ONCE DAILY ((FOR 4 WEEKS AND 1 WEEK OF WASH OUT PERIOD)
     Route: 048
     Dates: start: 201212
  3. XGEVA [Concomitant]
     Indication: BLOOD CALCIUM INCREASED
     Dosage: ONCE IN A MONTH

REACTIONS (4)
  - Pain [Recovered/Resolved]
  - Disease progression [Unknown]
  - Renal cancer metastatic [Unknown]
  - Pain [Not Recovered/Not Resolved]
